FAERS Safety Report 10223380 (Version 1)
Quarter: 2014Q2

REPORT INFORMATION
  Report Type: Spontaneous
  Country: US (occurrence: US)
  Receive Date: 20140609
  Receipt Date: 20140609
  Transmission Date: 20141212
  Serious: No
  Sender: FDA-Public Use
  Company Number: US-DRREDDYS-USA/USA/13/0030023

PATIENT
  Age: 68 Year
  Sex: Male
  Weight: 117.9 kg

DRUGS (1)
  1. FEXOFENADINE HCL  OTC [Suspect]
     Indication: SEASONAL ALLERGY
     Dosage: 180 MG DAILY
     Route: 048
     Dates: start: 20130609

REACTIONS (1)
  - Swelling face [Not Recovered/Not Resolved]
